FAERS Safety Report 17724469 (Version 1)
Quarter: 2020Q2

REPORT INFORMATION
  Report Type: Spontaneous
  Country: GR (occurrence: GR)
  Receive Date: 20200429
  Receipt Date: 20200429
  Transmission Date: 20200714
  Serious: Yes (Hospitalization, Other)
  Sender: FDA-Public Use
  Company Number: GR-MYLANLABS-2020M1039176

PATIENT
  Age: 50 Year
  Sex: Male

DRUGS (15)
  1. RETEPLASE [Suspect]
     Active Substance: RETEPLASE
     Indication: THROMBOLYSIS
     Dosage: 10 UNIT (SLOW BOLUS)
     Route: 042
  2. PANTOPRAZOLE [Concomitant]
     Active Substance: PANTOPRAZOLE
     Indication: PROPHYLAXIS AGAINST GASTROINTESTINAL ULCER
     Dosage: 20 MILLIGRAM, QD
  3. BISOPROLOL [Concomitant]
     Active Substance: BISOPROLOL
     Indication: ISCHAEMIC HEART DISEASE PROPHYLAXIS
     Dosage: 5 MILLIGRAM, QD
  4. ENOXAPARIN [Suspect]
     Active Substance: ENOXAPARIN
     Indication: THROMBOLYSIS
     Dosage: 30 MG, SINGLE
     Route: 042
  5. CLOPIDOGREL [Suspect]
     Active Substance: CLOPIDOGREL BISULFATE
     Indication: ANTIPLATELET THERAPY
     Dosage: 300 MG, SINGLE
  6. TICAGRELOR. [Interacting]
     Active Substance: TICAGRELOR
     Indication: ANTIPLATELET THERAPY
     Dosage: 90 MILLIGRAM, QD
  7. ASPIRIN                            /00002701/ [Suspect]
     Active Substance: ASPIRIN
     Dosage: 250 MG, SINGLE
  8. ATORVASTATIN [Concomitant]
     Active Substance: ATORVASTATIN
     Indication: ISCHAEMIC HEART DISEASE PROPHYLAXIS
     Dosage: 40 MILLIGRAM, QD
  9. TICAGRELOR. [Interacting]
     Active Substance: TICAGRELOR
     Dosage: 90 MG, BID
  10. TICAGRELOR. [Interacting]
     Active Substance: TICAGRELOR
     Dosage: 180 UNK
  11. ENOXAPARIN [Suspect]
     Active Substance: ENOXAPARIN
     Indication: ANTICOAGULANT THERAPY
     Dosage: 70 MILLIGRAM
     Route: 058
  12. RETEPLASE [Suspect]
     Active Substance: RETEPLASE
     Dosage: 10 UNIT (AFTER 30 MIN OF 1ST DOSE)
     Route: 042
  13. CLOPIDOGREL [Interacting]
     Active Substance: CLOPIDOGREL BISULFATE
     Dosage: UNK
  14. ASPIRIN                            /00002701/ [Suspect]
     Active Substance: ASPIRIN
     Indication: ANTIPLATELET THERAPY
     Dosage: 100 MILLIGRAM, QD
  15. FUROSEMIDE. [Concomitant]
     Active Substance: FUROSEMIDE
     Indication: ISCHAEMIC HEART DISEASE PROPHYLAXIS
     Dosage: 20 MILLIGRAM, QD

REACTIONS (6)
  - Pain [Recovered/Resolved]
  - Spinal epidural haematoma [Recovered/Resolved]
  - Neck pain [Recovered/Resolved]
  - Headache [Recovered/Resolved]
  - Spinal cord compression [Recovering/Resolving]
  - Drug interaction [Unknown]
